FAERS Safety Report 6423688-2 (Version None)
Quarter: 2009Q4

REPORT INFORMATION
  Report Type: 
  Country: None (occurrence: None)
  Receive Date: 20091102
  Receipt Date: 20091020
  Transmission Date: 20100525
  Serious: Yes (Other)
  Sender: FDA-Public Use
  Company Number: US-PFIZER INC-2009286937

PATIENT
  Sex: Female
  Weight: 69.388 kg

DRUGS (10)
  1. CHANTIX [Suspect]
     Indication: SMOKING CESSATION THERAPY
     Dates: start: 20090701
  2. XANAX [Suspect]
     Indication: ANXIETY
     Dates: start: 19900808
  3. NEURONTIN [Suspect]
     Indication: NEURALGIA
  4. LIPITOR [Suspect]
  5. CARBAMAZEPINE [Concomitant]
  6. CLONAZEPAM [Concomitant]
  7. ZETIA [Concomitant]
  8. SYNTHROID [Concomitant]
  9. VALTREX [Concomitant]
  10. WARFARIN [Concomitant]

REACTIONS (17)
  - ANGER [None]
  - ANXIETY [None]
  - BALANCE DISORDER [None]
  - BRAIN STEM STROKE [None]
  - BUNION [None]
  - CONCUSSION [None]
  - DRUG INEFFECTIVE [None]
  - FALL [None]
  - FRUSTRATION [None]
  - HEADACHE [None]
  - LIMB INJURY [None]
  - PROCEDURAL PAIN [None]
  - RESTLESS LEGS SYNDROME [None]
  - RHINALGIA [None]
  - THERMOHYPOAESTHESIA [None]
  - TRANSIENT ISCHAEMIC ATTACK [None]
  - UPPER LIMB FRACTURE [None]
